FAERS Safety Report 7382045-5 (Version None)
Quarter: 2011Q1

REPORT INFORMATION
  Report Type: 
  Country: None (occurrence: None)
  Receive Date: 20110329
  Receipt Date: 20110324
  Transmission Date: 20110831
  Serious: Yes (Death, Hospitalization)
  Sender: FDA-Public Use
  Company Number: US-US-EMD SERONO, INC.-7049825

PATIENT
  Sex: Male

DRUGS (2)
  1. REBIF [Suspect]
     Indication: MULTIPLE SCLEROSIS
     Route: 058
     Dates: start: 20020101, end: 20100201
  2. REBIF [Suspect]
     Route: 058
     Dates: start: 20100301, end: 20100101

REACTIONS (4)
  - URINARY TRACT INFECTION [None]
  - PNEUMONIA [None]
  - SEPSIS [None]
  - PULMONARY EMBOLISM [None]
